FAERS Safety Report 7275289-4 (Version None)
Quarter: 2011Q1

REPORT INFORMATION
  Report Type: 
  Country: None (occurrence: None)
  Receive Date: 20110131
  Receipt Date: 20110114
  Transmission Date: 20110831
  Serious: Yes (Hospitalization)
  Sender: FDA-Public Use
  Company Number: PHHY2010FR80865

PATIENT
  Age: 24 Year
  Sex: Male

DRUGS (4)
  1. DANTRIUM [Concomitant]
  2. ANTI-ASTHMATICS (NO INGREDIENTS/SUBSTANCES) [Concomitant]
  3. METHADONE (METHADONE) [Concomitant]
  4. SIRDALUD (TIZANIDINE HYDROCHLORIDE) TABLET, 4 MG [Suspect]
     Dosage: 4 MG, QD ORAL
     Route: 048
     Dates: start: 20101007, end: 20101110

REACTIONS (3)
  - CARDIO-RESPIRATORY ARREST [None]
  - THROMBOCYTOPENIA [None]
  - ASTHMA [None]
